FAERS Safety Report 8948586 (Version 1)
Quarter: 2012Q4

REPORT INFORMATION
  Report Type: Spontaneous
  Country: SG (occurrence: None)
  Receive Date: 20121123
  Receipt Date: 20121123
  Transmission Date: 20130627
  Serious: Yes (Hospitalization)
  Sender: FDA-Public Use
  Company Number: DKLU1086471

PATIENT
  Age: 16 Year
  Sex: Female
  Weight: 66 kg

DRUGS (27)
  1. COSMEGEN [Suspect]
     Indication: RHABDOMYOSARCOMA
     Dosage: 2 mg milligram(s), 1 in 1 cyclical, intravenous
     Route: 042
     Dates: start: 20100618
  2. DOXORUBICIN HYDROCHHLORIDE [Suspect]
     Indication: RHABDOMYOSARCOMA
     Dosage: 60 mg milligram(s), 2 in 1 cyclical), intravenous
     Route: 042
     Dates: start: 20100618
  3. IFOSFAMIDE [Suspect]
     Indication: RHABDOMYOSARCOMA
     Dosage: 6 g gram(s), 2 in 1 cyclical, intravenous
     Route: 042
     Dates: start: 20100618
  4. VINCRISTINE SULFATE [Suspect]
     Dosage: 2 mg milligram(s), 1 in 1 cyclical, intravenous
     Route: 042
     Dates: start: 20100618
  5. AMITRIPYTINE [Concomitant]
  6. CALCIUM [Concomitant]
  7. CO-TRIMOXAZOLE [Concomitant]
  8. DEXAMETHASONE [Concomitant]
  9. FENTANYL CITRATE [Concomitant]
  10. FLUCONAZOLE (FLUCONAZOLE) [Concomitant]
  11. GABAPENTIN [Concomitant]
  12. GRANISETRON [Concomitant]
  13. LACTULOSE [Concomitant]
  14. LEVOMEPROMAZINE [Concomitant]
  15. MAGNESIUM ASPARTATE [Concomitant]
  16. METOCLOPRAMIDE [Concomitant]
  17. NABILONE [Concomitant]
  18. OMEPRAZOLE [Concomitant]
  19. ONDANSETRON [Concomitant]
  20. PARACETAMOL [Concomitant]
  21. PHENYLEPHRINE HYDROCHLORIDE [Concomitant]
  22. PHOSPHATE-SANDOZ [Concomitant]
  23. SANDO-K [Concomitant]
  24. SENNA [Concomitant]
  25. SEVREDOL [Concomitant]
  26. TAZOCIN [Concomitant]
  27. TROPICAMIDE [Concomitant]

REACTIONS (5)
  - Febrile neutropenia [None]
  - Haemoglobin decreased [None]
  - White blood cell count decreased [None]
  - Platelet count decreased [None]
  - Presyncope [None]
